FAERS Safety Report 6104760-3 (Version None)
Quarter: 2009Q1

REPORT INFORMATION
  Report Type: 
  Country: None (occurrence: None)
  Receive Date: 20090304
  Receipt Date: 20090304
  Transmission Date: 20090719
  Serious: No
  Sender: FDA-Public Use
  Company Number: None

PATIENT
  Age: 36 Year
  Sex: Female
  Weight: 56.6996 kg

DRUGS (3)
  1. FLUOXETINE HCL [Suspect]
     Indication: DEPRESSION
     Dosage: 80 MG 1 / DAY 047
  2. FLUOXETINE HCL [Suspect]
     Indication: EATING DISORDER
     Dosage: 80 MG 1 / DAY 047
  3. LOESTRIN 1.5/30 [Concomitant]

REACTIONS (6)
  - DEPRESSION [None]
  - DRUG EFFECT DECREASED [None]
  - HYPERPHAGIA [None]
  - IMPULSE-CONTROL DISORDER [None]
  - OBSESSIVE-COMPULSIVE DISORDER [None]
  - PRODUCT QUALITY ISSUE [None]
